FAERS Safety Report 7713464-2 (Version None)
Quarter: 2011Q3

REPORT INFORMATION
  Report Type: 
  Country: None (occurrence: None)
  Receive Date: 20110826
  Receipt Date: 20110823
  Transmission Date: 20111222
  Serious: Yes (Other)
  Sender: FDA-Public Use
  Company Number: US-PFIZER INC-2007000878

PATIENT
  Sex: Female
  Weight: 63.492 kg

DRUGS (20)
  1. CHANTIX [Suspect]
     Indication: SMOKING CESSATION THERAPY
     Dosage: 0.5 MG, 1X/DAY
     Dates: start: 20060101, end: 20060101
  2. PAXIL [Concomitant]
     Indication: DEPRESSION
  3. NICODERM [Suspect]
     Dosage: UNK
  4. DIAZEPAM [Concomitant]
     Indication: DEPRESSION
  5. AMITRIPTYLINE [Concomitant]
     Indication: ANXIETY
  6. PROMETHAZINE HYDROCHLORIDE [Concomitant]
     Dosage: 25 MG, UNK
  7. ZYRTEC [Concomitant]
     Indication: SINUS DISORDER
     Dosage: 10 MG, UNK
  8. AMITRIPTYLINE [Concomitant]
     Indication: DEPRESSION
     Dosage: 4 MG, UNK
     Route: 048
  9. AMITRIPTYLINE [Concomitant]
     Indication: NEUROPATHY PERIPHERAL
  10. CHANTIX [Suspect]
     Dosage: UNK
     Dates: end: 20100101
  11. ACETYLSALICYLIC ACID [Concomitant]
     Dosage: 81 MG, UNK
  12. LOPERAMIDE HCL [Concomitant]
     Dosage: AS NEEDED
  13. TIAZAC [Concomitant]
     Indication: CARDIAC DISORDER
  14. DIAZEPAM [Concomitant]
     Indication: SLEEP DISORDER
     Dosage: 4 MG, DAILY
     Route: 048
  15. MECLIZINE [Concomitant]
     Indication: DIZZINESS
     Dosage: 2.5 MG, 2X/DAY
  16. PAXIL [Concomitant]
     Indication: ANXIETY
     Dosage: 0.5 MG, 1X/DAY
     Route: 048
  17. RHINOCORT [Concomitant]
  18. DIAZEPAM [Concomitant]
     Indication: ANXIETY
  19. PREMARIN [Concomitant]
     Dosage: 0.062 MG, UNK
  20. SPIRIVA [Concomitant]
     Dosage: UNK

REACTIONS (12)
  - HEARING IMPAIRED [None]
  - POLYURIA [None]
  - FALL [None]
  - LIP AND/OR ORAL CAVITY CANCER [None]
  - BALANCE DISORDER [None]
  - CHRONIC OBSTRUCTIVE PULMONARY DISEASE [None]
  - HEART RATE ABNORMAL [None]
  - WEIGHT INCREASED [None]
  - TONGUE CYST [None]
  - EAR INJURY [None]
  - AGGRESSION [None]
  - NERVOUSNESS [None]
